FAERS Safety Report 5010087-3 (Version None)
Quarter: 2006Q2

REPORT INFORMATION
  Report Type: 
  Country: None (occurrence: None)
  Receive Date: 20060523
  Receipt Date: 20060511
  Transmission Date: 20061013
  Serious: Yes (Hospitalization)
  Sender: FDA-Public Use
  Company Number: 2006004465

PATIENT
  Age: 63 Year
  Sex: Female

DRUGS (4)
  1. AROMASIN [Suspect]
     Indication: BREAST CANCER
     Dosage: 25 MG (25 MG, 1 IN 1 D), ORAL
     Route: 048
     Dates: start: 20021004, end: 20060209
  2. AROMASIN [Suspect]
     Indication: BREAST CANCER
     Dosage: 25 MG (25 MG, 1 IN 1 D), ORAL
     Route: 048
     Dates: start: 20060502
  3. ZOLPIDEM TARTRATE [Concomitant]
  4. CAPTOPRIL AND HYDROCHLOROTHIAZIDE [Concomitant]

REACTIONS (6)
  - CHONDROPATHY [None]
  - CONDITION AGGRAVATED [None]
  - GENERAL PHYSICAL CONDITION ABNORMAL [None]
  - OSTEONECROSIS [None]
  - PHLEBITIS [None]
  - POST PROCEDURAL COMPLICATION [None]
